FAERS Safety Report 9280173 (Version 1)
Quarter: 2013Q2

REPORT INFORMATION
  Report Type: Spontaneous
  Country: GB (occurrence: GB)
  Receive Date: 20130509
  Receipt Date: 20130509
  Transmission Date: 20140414
  Serious: Yes (Hospitalization, Other)
  Sender: FDA-Public Use
  Company Number: GB-GENZYME-200821904GPV

PATIENT
  Age: 28 Year
  Sex: Female

DRUGS (6)
  1. CAMPATH [Suspect]
     Indication: MULTIPLE SCLEROSIS
     Dosage: 24 MG, UNK
     Route: 042
     Dates: start: 200509
  2. CAMPATH [Suspect]
     Dosage: 24 MG, UNK
     Route: 042
     Dates: start: 200609
  3. MONOCLONAL ANTIBODIES [Suspect]
     Indication: PROPHYLAXIS
     Dosage: UNK
     Route: 042
     Dates: start: 200509
  4. METHYLPREDNISOLONE [Concomitant]
     Indication: CYTOKINE RELEASE SYNDROME
  5. LEVOTHYROXINE [Concomitant]
     Indication: HYPOTHYROIDISM
     Dosage: UNK, QD
     Route: 048
  6. TERBUTALINE [Concomitant]
     Indication: ASTHMA
     Dosage: 250 MG / ACTUATION INHALER, 1 TO 2 PUFFS
     Route: 055

REACTIONS (2)
  - Castleman^s disease [Recovered/Resolved]
  - Adrenal insufficiency [Unknown]
